FAERS Safety Report 20113024 (Version 2)
Quarter: 2022Q1

REPORT INFORMATION
  Report Type: Report from Study
  Country: KR (occurrence: None)
  Receive Date: 20211125
  Receipt Date: 20220104
  Transmission Date: 20220423
  Serious: Yes (Hospitalization)
  Sender: FDA-Public Use
  Company Number: KR-ROCHE-2849508

PATIENT
  Age: 76 Year
  Sex: Male
  Weight: 57.7 kg

DRUGS (1)
  1. COBIMETINIB [Suspect]
     Active Substance: COBIMETINIB
     Indication: Malignant melanoma
     Dosage: COBIMETINIB PRIOR TO AESI ONSET ON  27/MAY/2021
     Route: 048
     Dates: start: 20210518, end: 20210522

REACTIONS (2)
  - Dermatitis acneiform [Recovered/Resolved]
  - Pneumonitis [Unknown]

NARRATIVE: CASE EVENT DATE: 20210523
